FAERS Safety Report 4598174-5 (Version None)
Quarter: 2005Q1

REPORT INFORMATION
  Report Type: 
  Country: None (occurrence: None)
  Receive Date: 20050302
  Receipt Date: 20041118
  Transmission Date: 20050727
  Serious: Yes (Other)
  Sender: FDA-Public Use
  Company Number: ANTE001258

PATIENT
  Age: 26 Year
  Sex: Female

DRUGS (4)
  1. NATALIZUMAB (NATALIZUMAB) [Suspect]
     Indication: MULTIPLE SCLEROSIS
     Dosage: 300 MG QM IV
     Route: 042
     Dates: start: 20020503, end: 20040722
  2. TYLENOL (CAPLET) [Concomitant]
  3. DEPO-PROVERA [Concomitant]
  4. PROZAC [Concomitant]

REACTIONS (6)
  - ABORTION [None]
  - CERVICAL DYSPLASIA [None]
  - CERVIX CARCINOMA STAGE 0 [None]
  - DRUG EXPOSURE DURING PREGNANCY [None]
  - PAPILLOMA VIRAL INFECTION [None]
  - PREGNANCY [None]
